FAERS Safety Report 7938556 (Version 5)
Quarter: 2013Q4

REPORT INFORMATION
  Report Type: Report from Study
  Country: GB (occurrence: GB)
  Receive Date: 20110510
  Receipt Date: 20131018
  Transmission Date: 20140711
  Serious: Yes (Other)
  Sender: FDA-Public Use
  Company Number: GB-PFIZER INC-2011096535

PATIENT
  Age: 21 Year
  Sex: Female

DRUGS (3)
  1. MYLOTARG [Suspect]
     Dosage: 5.3 MG, UNK
     Dates: start: 20110327
  2. CYTARABINE [Suspect]
  3. DAUNORUBICIN [Concomitant]

REACTIONS (1)
  - Hepatotoxicity [Recovered/Resolved]
